FAERS Safety Report 14836975 (Version 1)
Quarter: 2018Q2

REPORT INFORMATION
  Report Type: Report from Study
  Country: ES (occurrence: ES)
  Receive Date: 20180502
  Receipt Date: 20180502
  Transmission Date: 20180711
  Serious: Yes (Hospitalization)
  Sender: FDA-Public Use
  Company Number: ES-TEVA-2018-ES-887381

PATIENT
  Age: 32 Year
  Sex: Female

DRUGS (2)
  1. CIPROFLOXACIN (2049A) [Suspect]
     Active Substance: CIPROFLOXACIN
     Dosage: 750MG
     Dates: start: 20170817
  2. METRONIDAZOL (1966A) [Suspect]
     Active Substance: METRONIDAZOLE
     Dosage: 250MG
     Dates: start: 20170817

REACTIONS (1)
  - Toxic encephalopathy [Recovered/Resolved]

NARRATIVE: CASE EVENT DATE: 20170821
